FAERS Safety Report 8745984 (Version 3)
Quarter: 2012Q4

REPORT INFORMATION
  Report Type: 
  Country: US (occurrence: US)
  Receive Date: 20120827
  Receipt Date: 20121003
  Transmission Date: 20130627
  Serious: Yes (Other)
  Sender: FDA-Public Use
  Company Number: US-JNJFOC-20120809476

PATIENT
  Age: 19 None
  Sex: Female
  Weight: 65.77 kg

DRUGS (4)
  1. REMICADE [Suspect]
     Indication: CROHN^S DISEASE
     Route: 042
     Dates: start: 2012
  2. REMICADE [Suspect]
     Indication: CROHN^S DISEASE
     Route: 042
     Dates: start: 2011
  3. REMICADE [Suspect]
     Indication: CROHN^S DISEASE
     Route: 042
     Dates: start: 20060614
  4. UNKNOWN MEDICATION [Concomitant]
     Indication: CONTRACEPTION
     Route: 065

REACTIONS (6)
  - Depression [Not Recovered/Not Resolved]
  - Psoriasis [Recovering/Resolving]
  - Folliculitis [Recovering/Resolving]
  - Rash [Not Recovered/Not Resolved]
  - Oral discomfort [Not Recovered/Not Resolved]
  - Skin disorder [Not Recovered/Not Resolved]
